FAERS Safety Report 8606987-5 (Version None)
Quarter: 2012Q3

REPORT INFORMATION
  Report Type: 
  Country: None (occurrence: None)
  Receive Date: 20120820
  Receipt Date: 20120815
  Transmission Date: 20120928
  Serious: Yes (Other)
  Sender: FDA-Public Use
  Company Number: CH-PFIZER INC-2012199364

PATIENT
  Age: 60 Year
  Sex: Female

DRUGS (4)
  1. SULFASALAZINE [Suspect]
     Dosage: 2 G, 1X/DAY
     Route: 048
     Dates: start: 20120416, end: 20120511
  2. PANTOPRAZOLE [Concomitant]
     Dosage: 40 MG, 1X/DAY
     Route: 048
  3. MEFENACID [Concomitant]
     Dosage: 500 MG, AS NEEDED
     Route: 048
  4. SULFASALAZINE [Suspect]
     Indication: POLYARTHRITIS
     Dosage: 500 MG, 1X/DAY
     Route: 048
     Dates: start: 20120309

REACTIONS (3)
  - HYPOPLASTIC ANAEMIA [None]
  - TRANSAMINASES INCREASED [None]
  - HEPATOCELLULAR INJURY [None]
